FAERS Safety Report 11783882 (Version 1)
Quarter: 2015Q4

REPORT INFORMATION
  Report Type: Spontaneous
  Country: GB (occurrence: GB)
  Receive Date: 20151127
  Receipt Date: 20151127
  Transmission Date: 20160305
  Serious: Yes (Other)
  Sender: FDA-Public Use
  Company Number: GB-GUERBET LLC-1044726

PATIENT
  Age: 66 Year
  Sex: Male

DRUGS (18)
  1. AMOXICILLIN. [Concomitant]
     Active Substance: AMOXICILLIN
     Dates: start: 20150928, end: 20150928
  2. APIXABAN [Concomitant]
     Active Substance: APIXABAN
  3. NOVORAPID [Concomitant]
     Active Substance: INSULIN ASPART
  4. SALBUTAMOL [Concomitant]
     Active Substance: ALBUTEROL
  5. AMLODIPINE [Concomitant]
     Active Substance: AMLODIPINE BESYLATE
  6. IPRATROPIUM [Concomitant]
     Active Substance: IPRATROPIUM
  7. LANSOPRAZOLE. [Concomitant]
     Active Substance: LANSOPRAZOLE
  8. LEVEMIR [Concomitant]
     Active Substance: INSULIN DETEMIR
  9. PARACETAMOL [Concomitant]
     Active Substance: ACETAMINOPHEN
  10. INDAPAMIDE. [Concomitant]
     Active Substance: INDAPAMIDE
  11. DOCUSATE [Concomitant]
     Active Substance: DOCUSATE
  12. TIOTROPIUM [Concomitant]
     Active Substance: TIOTROPIUM
  13. CO-AMOXICLAV(AMOXICILLIN, CLAVULANATE POTASSIUM)( [Concomitant]
     Route: 042
     Dates: start: 20150929
  14. CODEINE [Concomitant]
     Active Substance: CODEINE
  15. ATORVASTATIN [Concomitant]
     Active Substance: ATORVASTATIN
  16. CLARITHROMYCIN. [Concomitant]
     Active Substance: CLARITHROMYCIN
     Dates: start: 20150929
  17. PREDNISOLONE. [Concomitant]
     Active Substance: PREDNISOLONE
  18. DOTAREM [Suspect]
     Active Substance: GADOTERATE MEGLUMINE
     Indication: NUCLEAR MAGNETIC RESONANCE IMAGING ABNORMAL
     Dates: start: 20150929

REACTIONS (2)
  - Acute kidney injury [Recovered/Resolved]
  - Renal impairment [Recovered/Resolved]

NARRATIVE: CASE EVENT DATE: 20150930
